FAERS Safety Report 4362328-3 (Version None)
Quarter: 2004Q2

REPORT INFORMATION
  Report Type: 
  Country: None (occurrence: None)
  Receive Date: 20040520
  Receipt Date: 20040520
  Transmission Date: 20050107
  Serious: Yes (Other)
  Sender: FDA-Public Use
  Company Number: None

PATIENT
  Age: 21 Year
  Sex: Male
  Weight: 87.9978 kg

DRUGS (2)
  1. CLINDAMYCIN HCL [Suspect]
     Indication: FURUNCLE
     Dosage: TWO BID ORAL
     Route: 048
  2. BACTRIM DS [Suspect]
     Dosage: ONE BID

REACTIONS (1)
  - RASH [None]
